FAERS Safety Report 7225261-5 (Version None)
Quarter: 2011Q1

REPORT INFORMATION
  Report Type: 
  Country: None (occurrence: None)
  Receive Date: 20110113
  Receipt Date: 20110107
  Transmission Date: 20110831
  Serious: Yes (Other)
  Sender: FDA-Public Use
  Company Number: B0690777A

PATIENT
  Sex: Female
  Weight: 44 kg

DRUGS (7)
  1. XELODA [Suspect]
     Dosage: 1500MG PER DAY
     Route: 048
     Dates: start: 20100617, end: 20100715
  2. ARTIST [Concomitant]
     Indication: CARDIAC FAILURE
     Route: 048
  3. TYKERB [Suspect]
     Indication: BREAST CANCER
     Dosage: 1250MG PER DAY
     Route: 048
     Dates: start: 20100617, end: 20100715
  4. POLARAMINE [Concomitant]
     Indication: PRURITUS
     Route: 048
  5. EURAX [Concomitant]
     Indication: PRURITUS
     Route: 061
  6. ALDACTONE [Concomitant]
     Indication: CARDIAC FAILURE
     Route: 048
  7. PYDOXAL [Concomitant]
     Indication: PROPHYLAXIS
     Route: 048
     Dates: start: 20100617, end: 20100715

REACTIONS (1)
  - ANAEMIA [None]
